FAERS Safety Report 24576521 (Version 3)
Quarter: 2024Q4

REPORT INFORMATION
  Report Type: Report from Study
  Country: KR (occurrence: KR)
  Receive Date: 20241104
  Receipt Date: 20241202
  Transmission Date: 20250114
  Serious: Yes (Other)
  Sender: NOVARTIS
  Company Number: KR-002147023-NVSC2024KR211394

PATIENT
  Age: 70 Year
  Sex: Female

DRUGS (10)
  1. BEOVU [Suspect]
     Active Substance: BROLUCIZUMAB-DBLL
     Indication: Neovascular age-related macular degeneration
     Dosage: 6 MG
     Route: 031
     Dates: start: 20221208, end: 20221208
  2. BEOVU [Suspect]
     Active Substance: BROLUCIZUMAB-DBLL
     Dosage: 6 MG
     Route: 031
     Dates: start: 20230117, end: 20230117
  3. BEOVU [Suspect]
     Active Substance: BROLUCIZUMAB-DBLL
     Dosage: 6 MG (THIRD INJECTION)
     Route: 031
     Dates: start: 20230217, end: 20230217
  4. BEOVU [Suspect]
     Active Substance: BROLUCIZUMAB-DBLL
     Dosage: 6 MG
     Route: 031
     Dates: start: 20230413, end: 20230413
  5. Tropherin [Concomitant]
     Indication: Pupil dilation procedure
     Dosage: UNK
     Route: 065
     Dates: start: 20221208
  6. VIGAMOX [Concomitant]
     Active Substance: MOXIFLOXACIN HYDROCHLORIDE
     Indication: Evidence based treatment
     Dosage: 1 DRP, Q2H
     Route: 047
     Dates: start: 20221208, end: 20221214
  7. VIGAMOX [Concomitant]
     Active Substance: MOXIFLOXACIN HYDROCHLORIDE
     Dosage: 1 DRP, Q2H
     Route: 047
     Dates: start: 20230117, end: 20230119
  8. VIGAMOX [Concomitant]
     Active Substance: MOXIFLOXACIN HYDROCHLORIDE
     Dosage: 1 DRP, Q2H
     Route: 047
     Dates: start: 20230217, end: 20230219
  9. VIGAMOX [Concomitant]
     Active Substance: MOXIFLOXACIN HYDROCHLORIDE
     Dosage: 1 DRP, Q2H
     Route: 047
     Dates: start: 20230413, end: 20230415
  10. PREDNILONE [Concomitant]
     Indication: Evidence based treatment
     Dosage: 1 DRP, QID
     Route: 065
     Dates: start: 20230117, end: 20230217

REACTIONS (1)
  - Eye inflammation [Recovering/Resolving]

NARRATIVE: CASE EVENT DATE: 20230413
